FAERS Safety Report 8606835-3 (Version None)
Quarter: 2012Q3

REPORT INFORMATION
  Report Type: 
  Country: None (occurrence: None)
  Receive Date: 20120820
  Receipt Date: 20120815
  Transmission Date: 20120928
  Serious: Yes (Hospitalization)
  Sender: FDA-Public Use
  Company Number: US-ROCHE-1102655

PATIENT
  Sex: Female

DRUGS (4)
  1. MABTHERA [Suspect]
     Indication: RHEUMATOID ARTHRITIS
     Route: 042
     Dates: start: 20120301
  2. LANTISEPTIC PRODUCT NOS [Concomitant]
  3. NOVOLOG [Concomitant]
  4. MABTHERA [Suspect]
     Dates: start: 20120801

REACTIONS (4)
  - PALPITATIONS [None]
  - DYSPNOEA [None]
  - BLOOD GLUCOSE INCREASED [None]
  - DYSARTHRIA [None]
